FAERS Safety Report 5488971-6 (Version None)
Quarter: 2007Q4

REPORT INFORMATION
  Report Type: 
  Country: None (occurrence: None)
  Receive Date: 20071016
  Receipt Date: 20071005
  Transmission Date: 20080405
  Serious: Yes (Other)
  Sender: FDA-Public Use
  Company Number: 2007SP012063

PATIENT
  Age: 66 Year
  Sex: Male

DRUGS (13)
  1. NOXAFIL [Suspect]
     Indication: BRONCHOPULMONARY ASPERGILLOSIS
     Dosage: 400 MG;QD, 400 MG;BID
     Dates: start: 20070530, end: 20070605
  2. NOXAFIL [Suspect]
     Indication: BRONCHOPULMONARY ASPERGILLOSIS
     Dosage: 400 MG;QD, 400 MG;BID
     Dates: start: 20070101
  3. TOBRAMYCIN [Suspect]
     Indication: DRUG USE FOR UNKNOWN INDICATION
     Dosage: BID; INH
     Route: 055
  4. MIRTAZAPINE [Concomitant]
  5. ALLOPURINOL [Concomitant]
  6. ACETYLCYSTEINE [Concomitant]
  7. SPIRONOLACTONE [Concomitant]
  8. POTASSIUM CHLORIDE [Concomitant]
  9. IDEOS [Concomitant]
  10. PRAVASTATIN [Concomitant]
  11. FUROSEMIDE [Concomitant]
  12. COTRIM DS [Concomitant]
  13. PANTOPRAZOLE SODIUM [Concomitant]

REACTIONS (5)
  - DEAFNESS BILATERAL [None]
  - DEAFNESS NEUROSENSORY [None]
  - HYPOACUSIS [None]
  - SELF-MEDICATION [None]
  - TINNITUS [None]
